FAERS Safety Report 23415272 (Version 1)
Quarter: 2024Q1

REPORT INFORMATION
  Report Type: Spontaneous
  Country: GB (occurrence: GB)
  Receive Date: 20240118
  Receipt Date: 20240118
  Transmission Date: 20240409
  Serious: Yes (Other)
  Sender: FDA-Public Use
  Company Number: None

PATIENT
  Age: 67 Year
  Sex: Male
  Weight: 114 kg

DRUGS (5)
  1. BEMPEDOIC ACID\EZETIMIBE [Suspect]
     Active Substance: BEMPEDOIC ACID\EZETIMIBE
     Indication: Blood cholesterol increased
     Dosage: 1 DF, QD
     Route: 065
     Dates: start: 20231113, end: 20240104
  2. DICLOFENAC SODIUM [Concomitant]
     Active Substance: DICLOFENAC\DICLOFENAC SODIUM
     Indication: Type 2 diabetes mellitus
     Dosage: 1 DF, QD (WITH FOOD)
     Route: 065
     Dates: start: 20240104
  3. CHOLECALCIFEROL [Concomitant]
     Active Substance: CHOLECALCIFEROL
     Indication: Product used for unknown indication
     Dosage: 1 DF, QD
     Route: 065
     Dates: start: 20231023, end: 20231113
  4. FOLIC ACID [Concomitant]
     Active Substance: FOLIC ACID
     Indication: Fatigue
     Dosage: 1 DF, QD (TO COMPLETE 4 MONTH COURSE)
     Route: 065
     Dates: start: 20231113, end: 20231226
  5. CHOLECALCIFEROL [Concomitant]
     Active Substance: CHOLECALCIFEROL
     Indication: Product used for unknown indication
     Dosage: 1 DF, TWICE EVERY 1WK (TAKE ONE TWICE A WEEK)
     Route: 065
     Dates: start: 20231023

REACTIONS (2)
  - Irritability [Recovering/Resolving]
  - Anger [Recovering/Resolving]

NARRATIVE: CASE EVENT DATE: 20240101
